FAERS Safety Report 8200252-6 (Version None)
Quarter: 2012Q1

REPORT INFORMATION
  Report Type: 
  Country: None (occurrence: None)
  Receive Date: 20120309
  Receipt Date: 20120309
  Transmission Date: 20120608
  Serious: No
  Sender: FDA-Public Use
  Company Number: None

PATIENT
  Sex: Male
  Weight: 79.3795 kg

DRUGS (1)
  1. SINGULAIR [Suspect]
     Indication: ASTHMA
     Dosage: 10MG 1 AT BEDTIME ORAL
     Route: 048
     Dates: start: 20111229

REACTIONS (6)
  - ANGER [None]
  - HEADACHE [None]
  - NIGHTMARE [None]
  - AGGRESSION [None]
  - RESTLESSNESS [None]
  - SCREAMING [None]
